FAERS Safety Report 6034713-5 (Version None)
Quarter: 2009Q1

REPORT INFORMATION
  Report Type: 
  Country: None (occurrence: None)
  Receive Date: 20090112
  Receipt Date: 20090105
  Transmission Date: 20090719
  Serious: Yes (Other)
  Sender: FDA-Public Use
  Company Number: FR-AVENTIS-200814315FR

PATIENT
  Age: 72 Year
  Sex: Female

DRUGS (7)
  1. ARAVA [Suspect]
     Indication: RHEUMATOID ARTHRITIS
     Route: 048
     Dates: start: 20050810
  2. KARDEGIC                           /00002703/ [Concomitant]
     Route: 048
  3. ISOPTIN [Concomitant]
     Route: 048
  4. VASTEN                             /00880402/ [Concomitant]
     Route: 048
  5. FOSINOPRIL SODIUM AND HYDROCHLOROTHIAZIDE [Concomitant]
     Route: 048
  6. VASTAREL [Concomitant]
     Route: 048
  7. CELEBREX [Concomitant]
     Route: 048

REACTIONS (2)
  - ANXIETY [None]
  - PANIC ATTACK [None]
